FAERS Safety Report 8582651 (Version 6)
Quarter: 2012Q4

REPORT INFORMATION
  Report Type: Report from Study
  Country: GB (occurrence: GB)
  Receive Date: 20120529
  Receipt Date: 20120907
  Transmission Date: 20130627
  Serious: Yes (Life-Threatening, Hospitalization)
  Sender: FDA-Public Use
  Company Number: GB-PFIZER INC-2012124325

PATIENT
  Age: 66 Year
  Sex: Male
  Weight: 60 kg

DRUGS (3)
  1. MYLOTARG [Suspect]
     Indication: ACUTE MYELOID LEUKAEMIA
     Dosage: 5.3 mg (total dose)
     Route: 042
     Dates: start: 20070920, end: 20070921
  2. CYTARABINE [Suspect]
     Indication: ACUTE MYELOID LEUKAEMIA
     Dosage: UNK
     Dates: start: 20070920, end: 20070921
  3. DAUNORUBICIN [Suspect]
     Indication: ACUTE MYELOID LEUKAEMIA
     Dosage: UNK
     Dates: start: 20070920, end: 20070921

REACTIONS (2)
  - Neutropenic sepsis [Recovered/Resolved]
  - Multi-organ failure [Recovered/Resolved]
